FAERS Safety Report 7494872-4 (Version None)
Quarter: 2011Q2

REPORT INFORMATION
  Report Type: 
  Country: None (occurrence: None)
  Receive Date: 20110520
  Receipt Date: 20110516
  Transmission Date: 20111010
  Serious: Yes (Death, Hospitalization, Other)
  Sender: FDA-Public Use
  Company Number: PHHO2010JP11409

PATIENT
  Sex: Male
  Weight: 49 kg

DRUGS (19)
  1. ARASENA A [Concomitant]
     Dosage: UNK
  2. FUROSEMIDE [Concomitant]
     Dosage: UNK
     Dates: start: 20090709
  3. ENALAPRIL MALEATE [Suspect]
     Indication: CARDIAC FAILURE
     Dosage: 10 MG, UNK
     Route: 048
     Dates: start: 20091223, end: 20100118
  4. SENNOSIDE [Concomitant]
  5. FELBINAC [Concomitant]
  6. VITAMEDIN CAPSULE [Concomitant]
  7. ALOSITOL [Concomitant]
     Indication: HYPERURICAEMIA
     Dosage: UNK
     Dates: start: 20110330, end: 20110401
  8. WARFARIN POTASSIUM [Concomitant]
     Dosage: UNK
     Dates: start: 19991117, end: 20110208
  9. SPIRONOLACTONE [Concomitant]
     Dosage: UNK
     Dates: start: 20091106
  10. SIGMART [Concomitant]
  11. NICORANDIL [Concomitant]
     Dosage: UNK
     Dates: start: 20060420
  12. ALISKIREN [Suspect]
     Indication: CARDIAC FAILURE
     Dosage: UNK
     Route: 048
     Dates: start: 20100309, end: 20101229
  13. ENALAPRIL MALEATE [Suspect]
     Dosage: 20 MG, UNK
     Route: 048
     Dates: start: 20100119, end: 20100215
  14. ACYCLOVIR [Concomitant]
  15. CARVEDILOL [Concomitant]
     Dosage: UNK
     Dates: start: 20090323
  16. CARVEDILOL [Concomitant]
  17. ALISKIREN [Suspect]
     Dosage: 150 MG, UNK
     Route: 048
     Dates: start: 20100216
  18. ASPIRIN [Concomitant]
  19. MS REISHIPPU ASTRA [Concomitant]

REACTIONS (33)
  - MALAISE [None]
  - MUSCULOSKELETAL PAIN [None]
  - FACE OEDEMA [None]
  - PROSTATE CANCER [None]
  - RENAL IMPAIRMENT [None]
  - CONSTIPATION [None]
  - FAECES DISCOLOURED [None]
  - ABDOMINAL PAIN UPPER [None]
  - CHEST PAIN [None]
  - METASTASIS [None]
  - PANCYTOPENIA [None]
  - OEDEMA PERIPHERAL [None]
  - ABDOMINAL PAIN LOWER [None]
  - ABDOMINAL PAIN [None]
  - PALLOR [None]
  - EYELID OEDEMA [None]
  - ABDOMINAL DISTENSION [None]
  - ANKLE FRACTURE [None]
  - DECREASED APPETITE [None]
  - HYPOTENSION [None]
  - ANAEMIA [None]
  - OCULAR ICTERUS [None]
  - BURNING SENSATION [None]
  - JOINT SWELLING [None]
  - CARDIAC FAILURE ACUTE [None]
  - DEHYDRATION [None]
  - HYPOPHAGIA [None]
  - CHOLELITHIASIS [None]
  - ABDOMINAL DISCOMFORT [None]
  - FALL [None]
  - ROTATOR CUFF SYNDROME [None]
  - SWELLING [None]
  - BONE ATROPHY [None]
